FAERS Safety Report 11402944 (Version 1)
Quarter: 2015Q3

REPORT INFORMATION
  Report Type: Spontaneous
  Country: US (occurrence: None)
  Receive Date: 20150820
  Receipt Date: 20150820
  Transmission Date: 20151125
  Serious: No
  Sender: FDA-Public Use
  Company Number: None

PATIENT
  Age: 44 Year
  Sex: Male
  Weight: 97.7 kg

DRUGS (1)
  1. VARENICLINE [Suspect]
     Active Substance: VARENICLINE
     Indication: SMOKING CESSATION THERAPY
     Dosage: 1 MG  UD   PO
     Route: 048
     Dates: start: 20150528, end: 20150625

REACTIONS (3)
  - Irritability [None]
  - Depression [None]
  - Mood swings [None]

NARRATIVE: CASE EVENT DATE: 20150625
